FAERS Safety Report 25906728 (Version 1)
Quarter: 2025Q4

REPORT INFORMATION
  Report Type: Spontaneous
  Country: JP (occurrence: JP)
  Receive Date: 20251010
  Receipt Date: 20251010
  Transmission Date: 20260118
  Serious: Yes (Death, Hospitalization, Other)
  Sender: SOMERSET THERAPEUTICS, LLC
  Company Number: JP-MIT-25-75-JP-2025-SOM-LIT-00058

PATIENT
  Age: 81 Year
  Sex: Male
  Weight: 52.9 kg

DRUGS (12)
  1. SULFAMETHOXAZOLE\TRIMETHOPRIM [Suspect]
     Active Substance: SULFAMETHOXAZOLE\TRIMETHOPRIM
     Indication: Antifungal prophylaxis
     Dosage: 200/40 MG
     Route: 065
  2. SULFAMETHOXAZOLE\TRIMETHOPRIM [Suspect]
     Active Substance: SULFAMETHOXAZOLE\TRIMETHOPRIM
     Indication: Prophylaxis against gastrointestinal ulcer
  3. PREDNISOLONE [Suspect]
     Active Substance: PREDNISOLONE
     Indication: Microscopic polyangiitis
     Dosage: PER DAY
     Route: 065
  4. PREDNISOLONE [Suspect]
     Active Substance: PREDNISOLONE
     Dosage: PER DAY
     Route: 065
  5. AVACOPAN [Suspect]
     Active Substance: AVACOPAN
     Indication: Microscopic polyangiitis
     Route: 065
  6. RITUXIMAB [Suspect]
     Active Substance: RITUXIMAB
     Indication: Microscopic polyangiitis
     Route: 065
  7. VONOPRAZAN [Suspect]
     Active Substance: VONOPRAZAN
     Indication: Antifungal prophylaxis
     Dosage: PER DAY
     Route: 065
  8. VONOPRAZAN [Suspect]
     Active Substance: VONOPRAZAN
     Indication: Prophylaxis against gastrointestinal ulcer
  9. PIPERACILLIN AND TAZOBACTAM [Concomitant]
     Active Substance: PIPERACILLIN SODIUM\TAZOBACTAM SODIUM
     Indication: Biliary tract infection
     Route: 065
  10. VANCOMYCIN [Concomitant]
     Active Substance: VANCOMYCIN
     Route: 065
  11. AMPICILLIN [Concomitant]
     Active Substance: AMPICILLIN
     Route: 065
  12. GANCICLOVIR [Concomitant]
     Active Substance: GANCICLOVIR
     Indication: Cytomegalovirus infection reactivation
     Route: 065

REACTIONS (1)
  - Vanishing bile duct syndrome [Fatal]
